FAERS Safety Report 24327303 (Version 1)
Quarter: 2024Q3

REPORT INFORMATION
  Report Type: Spontaneous
  Country: US (occurrence: None)
  Receive Date: 20240916
  Receipt Date: 20240916
  Transmission Date: 20241017
  Serious: Yes (Life-Threatening, Hospitalization, Disabling)
  Sender: Public
  Company Number: None

PATIENT
  Age: 64 Year
  Sex: Female
  Weight: 63 kg

DRUGS (8)
  1. JARDIANCE [Suspect]
     Active Substance: EMPAGLIFLOZIN
     Indication: Diabetes mellitus
     Route: 048
     Dates: end: 20240709
  2. B COMPLEX ONE A DAY CINNAMON GUMMIES [Concomitant]
  3. GUMMIES [Concomitant]
  4. MIRALAX [Concomitant]
     Active Substance: POLYETHYLENE GLYCOL 3350
  5. NEXIUM [Concomitant]
     Active Substance: ESOMEPRAZOLE MAGNESIUM
  6. CALCIUM [Concomitant]
  7. CITRATE [Concomitant]
     Active Substance: CITRIC ACID MONOHYDRATE
  8. HERBALS\TURMERIC [Concomitant]
     Active Substance: HERBALS\TURMERIC

REACTIONS (4)
  - Blood glucose increased [None]
  - Acute respiratory failure [None]
  - Diabetic ketoacidosis [None]
  - Myocardial injury [None]

NARRATIVE: CASE EVENT DATE: 20240709
